FAERS Safety Report 5829566-1 (Version None)
Quarter: 2008Q3

REPORT INFORMATION
  Report Type: 
  Country: None (occurrence: None)
  Receive Date: 20080729
  Receipt Date: 20080724
  Transmission Date: 20090109
  Serious: Yes (Hospitalization)
  Sender: FDA-Public Use
  Company Number: CERZ-1000290

PATIENT
  Age: 71 Year
  Sex: Female
  Weight: 53.2 kg

DRUGS (3)
  1. CEREZYME [Suspect]
     Indication: GAUCHER'S DISEASE
     Dosage: 60 U/KG, Q2W, 60 U/KG, QW, INTRAVENOUS,  30 U/KG, QW, INTRAVENOUS,  30 U/KG, Q2W, INTRAVENOUS
     Route: 042
     Dates: start: 19970521, end: 19980901
  2. CEREZYME [Suspect]
     Indication: GAUCHER'S DISEASE
     Dosage: 60 U/KG, Q2W, 60 U/KG, QW, INTRAVENOUS,  30 U/KG, QW, INTRAVENOUS,  30 U/KG, Q2W, INTRAVENOUS
     Route: 042
     Dates: start: 19980916, end: 20000801
  3. CEREZYME [Suspect]
     Indication: GAUCHER'S DISEASE
     Dosage: 60 U/KG, Q2W, 60 U/KG, QW, INTRAVENOUS,  30 U/KG, QW, INTRAVENOUS,  30 U/KG, Q2W, INTRAVENOUS
     Route: 042
     Dates: start: 20000823

REACTIONS (11)
  - ABDOMINAL DISTENSION [None]
  - ANOREXIA [None]
  - CARPAL TUNNEL SYNDROME [None]
  - CONSTIPATION [None]
  - DEPRESSION [None]
  - DEVICE FAILURE [None]
  - DISCOMFORT [None]
  - EPILEPSY [None]
  - GLOBAL AMNESIA [None]
  - HYPERTENSION [None]
  - WEIGHT INCREASED [None]
